FAERS Safety Report 7368800-6 (Version None)
Quarter: 2011Q1

REPORT INFORMATION
  Report Type: 
  Country: None (occurrence: None)
  Receive Date: 20110323
  Receipt Date: 20110310
  Transmission Date: 20110831
  Serious: Yes (Other)
  Sender: FDA-Public Use
  Company Number: CH-SANOFI-AVENTIS-2011SA014780

PATIENT
  Age: 69 Year
  Sex: Female

DRUGS (2)
  1. MULTAQ [Suspect]
     Indication: ATRIAL FIBRILLATION
     Route: 048
     Dates: start: 20101214, end: 20110128
  2. ASPIRIN [Concomitant]

REACTIONS (5)
  - PYREXIA [None]
  - HEPATIC ENZYME INCREASED [None]
  - NAUSEA [None]
  - DIARRHOEA [None]
  - PRURITUS GENERALISED [None]
